FAERS Safety Report 23259548 (Version 1)
Quarter: 2023Q4

REPORT INFORMATION
  Report Type: Spontaneous
  Country: IT (occurrence: IT)
  Receive Date: 20231204
  Receipt Date: 20231204
  Transmission Date: 20240110
  Serious: Yes (Other)
  Sender: FDA-Public Use
  Company Number: IT-DASHPHARMA-2023-IT-000198

PATIENT
  Age: 21 Year
  Sex: Male

DRUGS (1)
  1. TESTOSTERONE [Suspect]
     Active Substance: TESTOSTERONE
     Indication: Gender reassignment therapy
     Dosage: UNKNOWN
     Route: 065

REACTIONS (2)
  - Brugada syndrome [Unknown]
  - Unmasking of previously unidentified disease [Unknown]
